FAERS Safety Report 17225957 (Version 1)
Quarter: 2020Q1

REPORT INFORMATION
  Report Type: Spontaneous
  Country: AT (occurrence: AT)
  Receive Date: 20200102
  Receipt Date: 20200102
  Transmission Date: 20200409
  Serious: Yes (Life-Threatening, Other)
  Sender: FDA-Public Use
  Company Number: AT-BAUSCH-BL-2019-066266

PATIENT
  Age: 44 Year
  Sex: Female

DRUGS (16)
  1. REVOLADE [Interacting]
     Active Substance: ELTROMBOPAG
     Dosage: 50 MG, QD
     Route: 065
  2. REVOLADE [Interacting]
     Active Substance: ELTROMBOPAG
     Dosage: 75 MG, QD
     Route: 065
     Dates: start: 201902
  3. REVOLADE [Interacting]
     Active Substance: ELTROMBOPAG
     Dosage: 75 MG, QD (75MG/75MG ALTERNATING)
     Route: 065
     Dates: start: 201804
  4. CORTISONE [Interacting]
     Active Substance: CORTISONE
     Indication: IMMUNE THROMBOCYTOPENIC PURPURA
     Dosage: UNK
     Route: 065
     Dates: start: 2015
  5. REVOLADE [Interacting]
     Active Substance: ELTROMBOPAG
     Dosage: 50 MG, QD
     Route: 065
     Dates: start: 201901
  6. CORTISONE [Interacting]
     Active Substance: CORTISONE
     Dosage: 05 MG, QOD
     Route: 065
     Dates: start: 201908
  7. REVOLADE [Interacting]
     Active Substance: ELTROMBOPAG
     Indication: IMMUNE THROMBOCYTOPENIC PURPURA
     Route: 065
     Dates: start: 201501
  8. REVOLADE [Interacting]
     Active Substance: ELTROMBOPAG
     Dosage: 75 MG, QD
     Route: 065
     Dates: start: 201805
  9. REVOLADE [Interacting]
     Active Substance: ELTROMBOPAG
     Dosage: 50 MG, QD
     Route: 065
  10. REVOLADE [Interacting]
     Active Substance: ELTROMBOPAG
     Dosage: UNK
     Dates: start: 201908
  11. PREDNISOLONE. [Suspect]
     Active Substance: PREDNISOLONE
     Indication: IMMUNE THROMBOCYTOPENIC PURPURA
     Dosage: UNK (INTRAVENOUS ANTIBODY THERAPY (6 CYCLES) IN COMBINATION WITH PREDNISOLONE)
     Route: 065
     Dates: start: 201812
  12. PREDNISOLONE. [Interacting]
     Active Substance: PREDNISOLONE
     Route: 065
     Dates: start: 201901
  13. REVOLADE [Interacting]
     Active Substance: ELTROMBOPAG
     Dosage: 25 MG, QD
     Route: 065
     Dates: start: 201505
  14. RITUXIMAB. [Interacting]
     Active Substance: RITUXIMAB
     Indication: IMMUNE THROMBOCYTOPENIC PURPURA
     Route: 065
     Dates: start: 201901
  15. REVOLADE [Interacting]
     Active Substance: ELTROMBOPAG
     Dosage: 25 MG, QD
     Route: 065
  16. IRON [Interacting]
     Active Substance: IRON
     Indication: IRON DEFICIENCY
     Dosage: UNK
     Route: 065

REACTIONS (5)
  - Drug interaction [Unknown]
  - Immune thrombocytopenic purpura [Unknown]
  - Thrombocytopenia [Unknown]
  - Remission not achieved [Unknown]
  - Iron deficiency [Unknown]

NARRATIVE: CASE EVENT DATE: 201804
